FAERS Safety Report 4716994-0 (Version None)
Quarter: 2005Q3

REPORT INFORMATION
  Report Type: 
  Country: None (occurrence: None)
  Receive Date: 20050715
  Receipt Date: 20050712
  Transmission Date: 20060218
  Serious: Yes (Life-Threatening, Other)
  Sender: FDA-Public Use
  Company Number: ESWYE828013JUL05

PATIENT
  Age: 56 Year
  Sex: Female

DRUGS (4)
  1. TAZOCEL (PIPERACILLIN/TAZOBACTAM, INJECTION) [Suspect]
     Indication: PELVIC INFLAMMATORY DISEASE
     Dosage: 13 G 3X PER 1 DAY
     Route: 042
     Dates: start: 20050505, end: 20050506
  2. RANITIDINE HYDROCHLORIDE [Concomitant]
  3. ACETAMINOPHEN [Concomitant]
  4. ENOXAPARIN SODIUM [Concomitant]

REACTIONS (4)
  - ERYTHEMA [None]
  - LICHENOID KERATOSIS [None]
  - PRURITUS [None]
  - RASH PAPULAR [None]
